FAERS Safety Report 6315583-4 (Version None)
Quarter: 2009Q3

REPORT INFORMATION
  Report Type: 
  Country: None (occurrence: None)
  Receive Date: 20090819
  Receipt Date: 20090811
  Transmission Date: 20100115
  Serious: Yes (Hospitalization)
  Sender: FDA-Public Use
  Company Number: AT-GENENTECH-288447

PATIENT
  Sex: Female

DRUGS (10)
  1. AVASTIN [Suspect]
     Indication: BREAST CANCER
     Dosage: 840 MG, Q3W
     Route: 042
     Dates: start: 20090430
  2. TRASTUZUMAB [Suspect]
     Indication: BREAST CANCER
     Dosage: 336 MG, Q3W
     Route: 042
     Dates: start: 20090430
  3. DOCETAXEL [Suspect]
     Indication: BREAST CANCER
     Dosage: 118.5 MG, Q3W
     Route: 042
     Dates: start: 20090430
  4. CARBOPLATIN [Suspect]
     Indication: BREAST CANCER
     Dosage: 774 MG, Q3W
     Route: 042
     Dates: start: 20090430
  5. MOTILIUM [Concomitant]
     Indication: DRUG USE FOR UNKNOWN INDICATION
     Dosage: UNK
     Dates: start: 20090430
  6. NAVOBAN [Concomitant]
     Indication: DRUG USE FOR UNKNOWN INDICATION
     Dosage: UNK
     Dates: start: 20090430
  7. PASPERTIN [Concomitant]
     Indication: DRUG USE FOR UNKNOWN INDICATION
     Dosage: UNK
     Dates: start: 20070430
  8. EMEND [Concomitant]
     Indication: DRUG USE FOR UNKNOWN INDICATION
     Dosage: UNK
     Dates: start: 20090430
  9. FORTECORTIN [Concomitant]
     Indication: DRUG USE FOR UNKNOWN INDICATION
     Dosage: UNK
     Dates: start: 20090429
  10. OMEPRAZOLE [Concomitant]
     Indication: DRUG USE FOR UNKNOWN INDICATION
     Dosage: UNK
     Dates: start: 20090610

REACTIONS (1)
  - SKIN DISORDER [None]
